FAERS Safety Report 7549316 (Version 4)
Quarter: 2014Q4

REPORT INFORMATION
  Report Type: Report from Study
  Country: NL (occurrence: NL)
  Receive Date: 20100822
  Receipt Date: 20141110
  Transmission Date: 20150529
  Serious: Yes (Hospitalization)
  Sender: FDA-Public Use
  Company Number: PHHO2010NL10753

PATIENT
  Age: 66 Year
  Sex: Male
  Weight: 81.7 kg

DRUGS (1)
  1. AFINITOR [Suspect]
     Active Substance: EVEROLIMUS
     Indication: NEUROENDOCRINE TUMOUR
     Dosage: UNK
     Route: 048
     Dates: start: 20100224, end: 20100810

REACTIONS (3)
  - Interstitial lung disease [Recovering/Resolving]
  - Liver abscess [Recovered/Resolved]
  - Lung infiltration [Recovering/Resolving]

NARRATIVE: CASE EVENT DATE: 20100614
